FAERS Safety Report 8506414-2 (Version None)
Quarter: 2012Q3

REPORT INFORMATION
  Report Type: 
  Country: None (occurrence: None)
  Receive Date: 20120712
  Receipt Date: 20120709
  Transmission Date: 20120928
  Serious: Yes (Life-Threatening, Other)
  Sender: FDA-Public Use
  Company Number: CA-PFIZER INC-2012163954

PATIENT
  Age: 52 Year
  Sex: Female

DRUGS (6)
  1. LYRICA [Interacting]
     Dosage: 50 MG, 3X/DAY
     Dates: start: 20110101
  2. LYRICA [Interacting]
     Indication: FIBROMYALGIA
     Dosage: 50 MG, 1X/DAY
     Route: 048
     Dates: start: 20110501, end: 20110101
  3. LYRICA [Interacting]
     Dosage: 100 MG, 1X/DAY
     Route: 048
     Dates: start: 20110101, end: 20110101
  4. TYLENOL W/ CODEINE NO. 3 [Concomitant]
     Indication: PAIN
     Dosage: UNK
  5. PROZAC [Interacting]
     Indication: DEPRESSION
     Dosage: 30 MG, 1X/DAY
  6. TOPAMAX [Suspect]
     Dosage: UNK

REACTIONS (4)
  - DRUG INTERACTION [None]
  - FIBROMYALGIA [None]
  - WEIGHT INCREASED [None]
  - SUICIDE ATTEMPT [None]
